FAERS Safety Report 26160522 (Version 1)
Quarter: 2025Q4

REPORT INFORMATION
  Report Type: Other
  Country: EU (occurrence: EU)
  Receive Date: 20251216
  Receipt Date: 20251216
  Transmission Date: 20260118
  Serious: Yes (Life-Threatening, Hospitalization)
  Sender: ZYDUS PHARM
  Company Number: None

PATIENT

DRUGS (5)
  1. ARIPIPRAZOLE [Suspect]
     Active Substance: ARIPIPRAZOLE
     Indication: Poisoning deliberate
     Dosage: 840 MILLIGRAM
     Route: 048
     Dates: start: 20251103, end: 20251103
  2. DIAZEPAM [Suspect]
     Active Substance: DIAZEPAM
     Indication: Poisoning deliberate
     Dosage: 300 MILLIGRAM
     Route: 048
     Dates: start: 20251103, end: 20251103
  3. CHLORPROMAZINE HYDROCHLORIDE [Suspect]
     Active Substance: CHLORPROMAZINE HYDROCHLORIDE
     Indication: Poisoning deliberate
     Dosage: 6500 MILLIGRAM
     Route: 048
     Dates: start: 20251103, end: 20251103
  4. LOXAPINE SUCCINATE [Suspect]
     Active Substance: LOXAPINE SUCCINATE
     Indication: Poisoning deliberate
     Dosage: 1250 MILLIGRAM
     Route: 048
     Dates: start: 20251103, end: 20251103
  5. CYAMEMAZINE [Suspect]
     Active Substance: CYAMEMAZINE
     Indication: Poisoning deliberate
     Dosage: 3000 MILLIGRAM
     Route: 048
     Dates: start: 20251103, end: 20251103

REACTIONS (4)
  - Coma [Recovered/Resolved]
  - Atelectasis [Recovered/Resolved]
  - Poisoning deliberate [Recovered/Resolved]
  - Pneumonia aspiration [Recovered/Resolved]

NARRATIVE: CASE EVENT DATE: 20251103
